FAERS Safety Report 14116470 (Version 1)
Quarter: 2017Q4

REPORT INFORMATION
  Report Type: Spontaneous
  Country: US (occurrence: US)
  Receive Date: 20171023
  Receipt Date: 20171023
  Transmission Date: 20180321
  Serious: Yes (Other)
  Sender: FDA-Public Use
  Company Number: US-PFIZER INC-2017454994

PATIENT
  Age: 27 Year
  Sex: Female
  Weight: 81.65 kg

DRUGS (3)
  1. EFFEXOR [Suspect]
     Active Substance: VENLAFAXINE HYDROCHLORIDE
     Indication: ANXIETY
     Dosage: 37.5 MG, UNK (FOR FIRST 2 WEEKS)
     Dates: start: 201708
  2. METFORMIN [Concomitant]
     Active Substance: METFORMIN HYDROCHLORIDE
     Indication: GLUCOSE TOLERANCE IMPAIRED
     Dosage: 500 MG, 1X/DAY
     Dates: start: 201709
  3. EFFEXOR [Suspect]
     Active Substance: VENLAFAXINE HYDROCHLORIDE
     Dosage: 75 MG, 1X/DAY (10:00 AM)
     Dates: end: 201710

REACTIONS (15)
  - Drug dependence [Unknown]
  - Panic attack [Recovering/Resolving]
  - Chest discomfort [Unknown]
  - Parosmia [Not Recovered/Not Resolved]
  - Diarrhoea [Unknown]
  - Irritability [Not Recovered/Not Resolved]
  - Drug dose omission [Unknown]
  - Muscle twitching [Unknown]
  - Dizziness [Unknown]
  - Somnolence [Not Recovered/Not Resolved]
  - Feeling abnormal [Unknown]
  - Hot flush [Unknown]
  - Nausea [Recovering/Resolving]
  - Retching [Not Recovered/Not Resolved]
  - Decreased appetite [Unknown]
